FAERS Safety Report 19236130 (Version 4)
Quarter: 2021Q2

REPORT INFORMATION
  Report Type: Spontaneous
  Country: NZ (occurrence: NZ)
  Receive Date: 20210510
  Receipt Date: 20210617
  Transmission Date: 20210717
  Serious: Yes (Hospitalization)
  Sender: FDA-Public Use
  Company Number: NZ-B.I. PHARMACEUTICALS,INC./RIDGEFIELD-2021-BI-100816

PATIENT
  Age: 73 Year
  Sex: Male
  Weight: 95 kg

DRUGS (5)
  1. PRAXBIND [Suspect]
     Active Substance: IDARUCIZUMAB
     Dosage: THIRD TIME: 2 DAYS AFTER THE SECOND ADMINISTRATION
     Dates: start: 202104, end: 202104
  2. PRAXBIND [Suspect]
     Active Substance: IDARUCIZUMAB
     Indication: PROCOAGULANT THERAPY
     Dates: start: 20210423
  3. PRAXBIND [Suspect]
     Active Substance: IDARUCIZUMAB
     Dosage: FIFTH TIME: 3 DAYS AFTER THE FOURTH ADMINISTRATION.
     Dates: start: 202105, end: 202105
  4. PRAXBIND [Suspect]
     Active Substance: IDARUCIZUMAB
     Dosage: SECOND TIME: 4 DAYS AFTER THE FIRST ADMINISTRATION
     Dates: start: 202104, end: 202104
  5. PRAXBIND [Suspect]
     Active Substance: IDARUCIZUMAB
     Dosage: FOURTH TIME: 24 HOURS AFTER THE THIRD ADMINISTRATION
     Dates: start: 202105, end: 202105

REACTIONS (2)
  - Thrombin time abnormal [Recovered/Resolved]
  - Gastrointestinal haemorrhage [Recovered/Resolved]

NARRATIVE: CASE EVENT DATE: 20210423
